FAERS Safety Report 9704207 (Version 1)
Quarter: 2013Q4

REPORT INFORMATION
  Report Type: Spontaneous
  Country: US (occurrence: US)
  Receive Date: 20131122
  Receipt Date: 20131122
  Transmission Date: 20140711
  Serious: Yes (Other)
  Sender: FDA-Public Use
  Company Number: US-ALLERGAN-1318164US

PATIENT
  Age: 56 Year
  Sex: Female

DRUGS (3)
  1. BOTOX COSMETIC [Suspect]
     Indication: SKIN WRINKLING
     Dosage: 24 UNITS, SINGLE
     Route: 030
     Dates: start: 20131112, end: 20131112
  2. BOTOX COSMETIC [Suspect]
     Indication: SKIN WRINKLING
  3. BLOOD PRESSURE MEDICINE NOS [Concomitant]
     Indication: HYPERTENSION
     Dosage: UNK
     Route: 048

REACTIONS (13)
  - Suicidal ideation [Unknown]
  - Anxiety [Unknown]
  - Frequent bowel movements [Unknown]
  - Insomnia [Unknown]
  - Middle insomnia [Unknown]
  - Pollakiuria [Unknown]
  - Impaired work ability [Recovered/Resolved]
  - Nervousness [Recovered/Resolved]
  - Abdominal discomfort [Unknown]
  - Vision blurred [Unknown]
  - Nervousness [Unknown]
  - Eyelid ptosis [Unknown]
  - Abdominal discomfort [Unknown]
